FAERS Safety Report 8400257-6 (Version None)
Quarter: 2012Q2

REPORT INFORMATION
  Report Type: 
  Country: None (occurrence: None)
  Receive Date: 20120531
  Receipt Date: 20120523
  Transmission Date: 20120825
  Serious: No
  Sender: FDA-Public Use
  Company Number: US-B.I. PHARMACEUTICALS,INC./RIDGEFIELD-2012-BP-11575BP

PATIENT
  Age: 24 Year
  Sex: Male

DRUGS (1)
  1. ZANTAC 150 [Suspect]
     Indication: SINUS DISORDER
     Route: 048
     Dates: start: 20120501

REACTIONS (1)
  - URINE AMPHETAMINE POSITIVE [None]
